FAERS Safety Report 16543462 (Version 1)
Quarter: 2019Q3

REPORT INFORMATION
  Report Type: Spontaneous
  Country: DE (occurrence: DE)
  Receive Date: 20190709
  Receipt Date: 20190709
  Transmission Date: 20191004
  Serious: Yes (Other)
  Sender: FDA-Public Use
  Company Number: DE-ROCHE-2265502

PATIENT
  Sex: Male

DRUGS (1)
  1. CYMEVEN [GANCICLOVIR] [Suspect]
     Active Substance: GANCICLOVIR
     Indication: CYTOMEGALOVIRUS INFECTION
     Route: 042
     Dates: end: 20190209

REACTIONS (3)
  - Paravenous drug administration [Unknown]
  - Product administration error [Unknown]
  - Extravasation [Unknown]
